FAERS Safety Report 7142525-4 (Version None)
Quarter: 2010Q4

REPORT INFORMATION
  Report Type: 
  Country: None (occurrence: None)
  Receive Date: 20101112
  Receipt Date: 20100730
  Transmission Date: 20110411
  Serious: No
  Sender: FDA-Public Use
  Company Number: 1000015441

PATIENT
  Age: 35 Year
  Sex: Female

DRUGS (1)
  1. SAVELLA [Suspect]
     Dates: end: 20100725

REACTIONS (1)
  - BLOOD PRESSURE INCREASED [None]
